FAERS Safety Report 8356715-6 (Version None)
Quarter: 2012Q2

REPORT INFORMATION
  Report Type: 
  Country: None (occurrence: None)
  Receive Date: 20120514
  Receipt Date: 20120510
  Transmission Date: 20120825
  Serious: Yes (Other)
  Sender: FDA-Public Use
  Company Number: PHHY2012ES039805

PATIENT
  Age: 82 Year
  Sex: Male

DRUGS (11)
  1. ASPIRIN [Concomitant]
     Dosage: UNK UKN, UNK
  2. AZILECT [Suspect]
     Indication: PARKINSON'S DISEASE
     Dosage: 1 MG, DAILY
     Dates: start: 20110601
  3. OPIREN [Concomitant]
     Dosage: UNK UKN, UNK
  4. DIAMICRON [Concomitant]
     Dosage: UNK UKN, UNK
  5. TRAMADOL HYDROCHLORIDE [Concomitant]
     Dosage: UNK UKN, UNK
  6. GALVUS [Concomitant]
     Dosage: UNK UKN, UNK
  7. UROLOSIN [Concomitant]
     Dosage: UNK UKN, UNK
  8. VALDOXAN [Concomitant]
     Dosage: UNK UKN, UNK
  9. NEURONTIN [Concomitant]
     Dosage: UNK UKN, UNK
  10. NOCTAMID [Concomitant]
     Dosage: UNK UKN, UNK
  11. STALEVO 100 [Suspect]
     Indication: PARKINSON'S DISEASE
     Dosage: 200MG/50MG/12.5MG, 1 DF DAILY
     Route: 048
     Dates: start: 20110601, end: 20120201

REACTIONS (3)
  - RENAL FAILURE [None]
  - MALNUTRITION [None]
  - DIARRHOEA [None]
